FAERS Safety Report 21047392 (Version 1)
Quarter: 2022Q3

REPORT INFORMATION
  Report Type: Spontaneous
  Country: US (occurrence: US)
  Receive Date: 20220706
  Receipt Date: 20220706
  Transmission Date: 20221026
  Serious: No
  Sender: FDA-Public Use
  Company Number: US-drreddys-SPO/USA/22/0151541

PATIENT
  Age: 54 Year
  Sex: Female
  Weight: 58.96 kg

DRUGS (3)
  1. ICOSAPENT ETHYL [Suspect]
     Active Substance: ICOSAPENT ETHYL
     Indication: Blood cholesterol
     Dates: start: 20220617, end: 20220619
  2. ICOSAPENT ETHYL [Suspect]
     Active Substance: ICOSAPENT ETHYL
     Dates: start: 20220617, end: 20220619
  3. ICOSAPENT ETHYL [Suspect]
     Active Substance: ICOSAPENT ETHYL
     Dates: start: 20220617, end: 20220619

REACTIONS (2)
  - Vomiting [Unknown]
  - Refusal of treatment by patient [Unknown]

NARRATIVE: CASE EVENT DATE: 20220617
